FAERS Safety Report 11472964 (Version 2)
Quarter: 2016Q4

REPORT INFORMATION
  Report Type: Spontaneous
  Country: US (occurrence: US)
  Receive Date: 20150908
  Receipt Date: 20161123
  Transmission Date: 20170206
  Serious: Yes (Other)
  Sender: FDA-Public Use
  Company Number: US-JAZZ-2014-US-002166

PATIENT
  Sex: Female
  Weight: 66.21 kg

DRUGS (19)
  1. XYREM [Suspect]
     Active Substance: SODIUM OXYBATE
     Dosage: 5.75 G, TID
     Route: 048
     Dates: start: 201402, end: 201510
  2. FLEXERIL [Concomitant]
     Active Substance: CYCLOBENZAPRINE HYDROCHLORIDE
     Indication: FIBROMYALGIA
     Dosage: 10 MG, PRN
  3. TRAZODONE [Concomitant]
     Active Substance: TRAZODONE HYDROCHLORIDE
     Indication: SLEEP DISORDER
  4. SONATA [Concomitant]
     Active Substance: ZALEPLON
     Indication: SLEEP DISORDER
     Dosage: 10 MG, QD
  5. TRAZODONE [Concomitant]
     Active Substance: TRAZODONE HYDROCHLORIDE
     Indication: FIBROMYALGIA
     Dosage: 200 MG, QD
  6. XYREM [Suspect]
     Active Substance: SODIUM OXYBATE
     Indication: FIBROMYALGIA
     Dosage: 2.25 G, BID
     Route: 048
     Dates: start: 201202, end: 2012
  7. URISPAS [Concomitant]
     Active Substance: FLAVOXATE HYDROCHLORIDE
     Indication: NEPHRITIS
     Dosage: 100 MG, UNK
  8. ATARAX [Concomitant]
     Active Substance: HYDROXYZINE\HYDROXYZINE HYDROCHLORIDE
     Indication: NEPHRITIS
     Dosage: 25 MG, UNK
  9. XYREM [Suspect]
     Active Substance: SODIUM OXYBATE
     Dosage: DOSE ADJUSTMENTS
     Route: 048
  10. ORTHO-CEPT [Concomitant]
     Active Substance: DESOGESTREL\ETHINYL ESTRADIOL
     Indication: ENDOMETRIOSIS
  11. ARMOUR THYROID [Concomitant]
     Active Substance: THYROID, PORCINE
     Indication: HYPOTHYROIDISM
     Dosage: 120 MG, QD
  12. KETAMINE [Concomitant]
     Active Substance: KETAMINE
     Indication: FIBROMYALGIA
     Dosage: 75 MG, PRN
  13. XYREM [Suspect]
     Active Substance: SODIUM OXYBATE
     Dosage: 7 G, TID
     Route: 048
     Dates: start: 201510
  14. XYREM [Suspect]
     Active Substance: SODIUM OXYBATE
     Dosage: 5.75 G, TID
     Route: 048
     Dates: end: 20140217
  15. AMBIEN CR [Concomitant]
     Active Substance: ZOLPIDEM TARTRATE
     Indication: SLEEP DISORDER
     Dosage: 12.5 MG, QD
  16. ACCOLATE [Concomitant]
     Active Substance: ZAFIRLUKAST
     Indication: NEPHRITIS
     Dosage: 20 MG, QD
  17. ZANAFLEX [Concomitant]
     Active Substance: TIZANIDINE HYDROCHLORIDE
     Indication: FIBROMYALGIA
     Dosage: 12 MG, QD
  18. CLONAZEPAM. [Concomitant]
     Active Substance: CLONAZEPAM
     Indication: SLEEP DISORDER
     Dosage: 2 MG, QD
  19. XYREM [Suspect]
     Active Substance: SODIUM OXYBATE
     Dosage: 5.75 G, BID
     Route: 048
     Dates: start: 20140218, end: 20140218

REACTIONS (3)
  - Weight decreased [Not Recovered/Not Resolved]
  - Asthma [Recovering/Resolving]
  - Malaise [Unknown]
